FAERS Safety Report 9056252 (Version 1)
Quarter: 2013Q1

REPORT INFORMATION
  Report Type: Report from Study
  Country: US (occurrence: US)
  Receive Date: 20130205
  Receipt Date: 20130205
  Transmission Date: 20140127
  Serious: Yes (Hospitalization, Other)
  Sender: FDA-Public Use
  Company Number: US-ABBOTT-13P-163-1043934-00

PATIENT
  Sex: Male

DRUGS (5)
  1. HUMIRA [Suspect]
     Indication: CROHN^S DISEASE
     Dates: start: 201111
  2. BUPROPION [Concomitant]
     Indication: DEPRESSION
  3. LANSOPRAZOLE [Concomitant]
     Indication: DYSPEPSIA
  4. INDOPRIL [Concomitant]
     Indication: BLOOD PRESSURE
  5. HCTZ [Concomitant]
     Indication: BLOOD PRESSURE

REACTIONS (5)
  - Loss of consciousness [Recovered/Resolved]
  - Balance disorder [Unknown]
  - Subdural haematoma [Unknown]
  - Injection site swelling [Unknown]
  - Injection site pruritus [Unknown]
